FAERS Safety Report 23712488 (Version 1)
Quarter: 2024Q2

REPORT INFORMATION
  Report Type: Spontaneous
  Country: CN (occurrence: CN)
  Receive Date: 20240405
  Receipt Date: 20240405
  Transmission Date: 20240716
  Serious: Yes (Other)
  Sender: FDA-Public Use
  Company Number: CN-009507513-2403CHN009723

PATIENT
  Age: 44 Year
  Sex: Female

DRUGS (6)
  1. IMIPENEM AND CILASTATIN [Suspect]
     Active Substance: CILASTATIN SODIUM\IMIPENEM
     Indication: Alpha haemolytic streptococcal infection
     Dosage: 0.5G TWICE PER DAY INTRA-ABDOMINALLY AND 0.5G ONCE PER 12 HOURS IV DRIP
     Dates: start: 20220314, end: 20220319
  2. IMIPENEM AND CILASTATIN [Suspect]
     Active Substance: CILASTATIN SODIUM\IMIPENEM
     Indication: Peritonitis
  3. AMIKACIN [Concomitant]
     Active Substance: AMIKACIN
     Indication: Alpha haemolytic streptococcal infection
     Dosage: GIVEN IN THE ABDOMINAL CAVITY
     Dates: start: 2022
  4. AMIKACIN [Concomitant]
     Active Substance: AMIKACIN
     Indication: Peritonitis
  5. CEPHRADINE [Concomitant]
     Active Substance: CEPHRADINE
     Indication: Alpha haemolytic streptococcal infection
     Dosage: GIVEN IN THE ABDOMINAL CAVITY
     Dates: start: 2022
  6. CEPHRADINE [Concomitant]
     Active Substance: CEPHRADINE
     Indication: Peritonitis

REACTIONS (5)
  - Depressed level of consciousness [Recovered/Resolved]
  - Disorganised speech [Recovered/Resolved]
  - Mental disorder [Recovered/Resolved]
  - Drug level increased [Unknown]
  - Incorrect route of product administration [Unknown]

NARRATIVE: CASE EVENT DATE: 20220314
